FAERS Safety Report 22143605 (Version 1)
Quarter: 2023Q1

REPORT INFORMATION
  Report Type: Spontaneous
  Country: US (occurrence: US)
  Receive Date: 20230327
  Receipt Date: 20230327
  Transmission Date: 20230417
  Serious: No
  Sender: FDA-Public Use
  Company Number: US-LUNDBECK-DKLU3059351

PATIENT
  Age: 35 Year
  Sex: Female
  Weight: 61.235 kg

DRUGS (1)
  1. VYEPTI [Suspect]
     Active Substance: EPTINEZUMAB-JJMR
     Indication: Migraine without aura
     Route: 041
     Dates: start: 20230307

REACTIONS (3)
  - Dysphonia [Recovered/Resolved]
  - Pruritus [Recovered/Resolved]
  - Paraesthesia oral [Recovered/Resolved]
